FAERS Safety Report 20976348 (Version 3)
Quarter: 2022Q4

REPORT INFORMATION
  Report Type: Spontaneous
  Country: CA (occurrence: CA)
  Receive Date: 20220617
  Receipt Date: 20221202
  Transmission Date: 20230113
  Serious: No
  Sender: FDA-Public Use
  Company Number: CA-PFIZER INC-202200604359

PATIENT
  Age: 73 Year
  Sex: Female

DRUGS (1)
  1. RUXIENCE [Suspect]
     Active Substance: RITUXIMAB-PVVR
     Indication: Sjogren^s syndrome
     Dosage: 1 G, EVERY 6 MONTHS
     Route: 042
     Dates: start: 20220614, end: 20220614

REACTIONS (1)
  - Off label use [Unknown]
